FAERS Safety Report 17115394 (Version 1)
Quarter: 2019Q4

REPORT INFORMATION
  Report Type: Spontaneous
  Country: US (occurrence: US)
  Receive Date: 20191112
  Receipt Date: 20191112
  Transmission Date: 20200122
  Serious: Yes (Hospitalization, Disabling)
  Sender: FDA-Public Use
  Company Number: None

PATIENT
  Age: 63 Year
  Sex: Female
  Weight: 95.25 kg

DRUGS (14)
  1. CIPROFLOXACIN. [Suspect]
     Active Substance: CIPROFLOXACIN
     Indication: CYSTITIS
     Route: 048
     Dates: start: 20190610, end: 20190615
  2. CHOLECHOL [Concomitant]
  3. GLUTATHIONE [Concomitant]
     Active Substance: GLUTATHIONE
  4. NEUROMAG [Concomitant]
  5. TURMERIC [Concomitant]
     Active Substance: HERBALS\TURMERIC
  6. VITAMIN B12 [Concomitant]
     Active Substance: CYANOCOBALAMIN
  7. LEVOTHYROXINE. [Concomitant]
     Active Substance: LEVOTHYROXINE
  8. COQ10 [Concomitant]
     Active Substance: UBIDECARENONE
  9. R LIPOIC ACID [Concomitant]
  10. PROBIOTICS [Concomitant]
     Active Substance: PROBIOTICS NOS
  11. ALPHALIPOIC ACID [Concomitant]
  12. GABAPENTIN. [Concomitant]
     Active Substance: GABAPENTIN
  13. PHOSPHALINE [Concomitant]
  14. MELATONIN [Concomitant]
     Active Substance: MELATONIN

REACTIONS (23)
  - Arthralgia [None]
  - Neuropathy peripheral [None]
  - Kidney infection [None]
  - Toxicity to various agents [None]
  - Intracranial pressure increased [None]
  - Impaired work ability [None]
  - Gait disturbance [None]
  - Pain [None]
  - Groin pain [None]
  - Nervous system disorder [None]
  - Anxiety [None]
  - Depression [None]
  - Dyspnoea [None]
  - Back pain [None]
  - Musculoskeletal pain [None]
  - Pain in extremity [None]
  - Headache [None]
  - Suicidal ideation [None]
  - Pollakiuria [None]
  - Tendonitis [None]
  - Loss of personal independence in daily activities [None]
  - Insomnia [None]
  - Dysphagia [None]

NARRATIVE: CASE EVENT DATE: 20190615
